FAERS Safety Report 4450150-9 (Version None)
Quarter: 2004Q3

REPORT INFORMATION
  Report Type: 
  Country: None (occurrence: None)
  Receive Date: 20040914
  Receipt Date: 20040901
  Transmission Date: 20050211
  Serious: Yes (Disabling)
  Sender: FDA-Public Use
  Company Number: HQWYE773502SEP04

PATIENT
  Age: 56 Year
  Sex: Female
  Weight: 108.96 kg

DRUGS (7)
  1. PROTONIX [Suspect]
     Indication: GASTROOESOPHAGEAL REFLUX DISEASE
     Dosage: 40 MG 1X PER 1 DAY, ORAL
     Route: 048
     Dates: start: 20040610, end: 20040901
  2. SYNTHROID [Concomitant]
  3. UROCIT-K (POTASSIUM CITRATE) [Concomitant]
  4. HYDROCHLOROTHIAZIDE [Concomitant]
  5. DOXAZOSIN (DOXAZOSIN) [Concomitant]
  6. ENALAPRIL MALEATE [Concomitant]
  7. MAGNESIUM OXIDE (MAGNESIUM OXIDE) [Concomitant]

REACTIONS (8)
  - BINOCULAR EYE MOVEMENT DISORDER [None]
  - COLLAGEN DISORDER [None]
  - EAR PAIN [None]
  - IIIRD NERVE PARALYSIS [None]
  - IMPAIRED DRIVING ABILITY [None]
  - LYME DISEASE [None]
  - METABOLIC DISORDER [None]
  - MULTIPLE SCLEROSIS [None]
